FAERS Safety Report 26078120 (Version 1)
Quarter: 2025Q4

REPORT INFORMATION
  Report Type: Spontaneous
  Country: EU (occurrence: EU)
  Receive Date: 20251122
  Receipt Date: 20251122
  Transmission Date: 20260117
  Serious: Yes (Disabling)
  Sender: TEVA
  Company Number: None

PATIENT
  Age: 47 Year
  Sex: Female
  Weight: 65 kg

DRUGS (2)
  1. AJOVY [Suspect]
     Active Substance: FREMANEZUMAB-VFRM
     Indication: Migraine
     Dosage: 1 X MONTH 1 PIECE, INJVLST 150MG/ML PEN 1.5ML
     Route: 065
     Dates: start: 20240701
  2. AMITRIPTYLINE [Suspect]
     Active Substance: AMITRIPTYLINE
     Indication: Headache
     Dosage: 1 X DAY 1 PIECE, AMITRIPTYLINE HCL, BRAND NAME NOT SPECIFIED
     Route: 048
     Dates: start: 20250801

REACTIONS (3)
  - Fatigue [Not Recovered/Not Resolved]
  - General physical health deterioration [Not Recovered/Not Resolved]
  - Disturbance in attention [Not Recovered/Not Resolved]
